FAERS Safety Report 12356574 (Version 5)
Quarter: 2016Q2

REPORT INFORMATION
  Report Type: Report from Study
  Country: US (occurrence: US)
  Receive Date: 20160511
  Receipt Date: 20160615
  Transmission Date: 20160815
  Serious: Yes (Hospitalization, Other)
  Sender: FDA-Public Use
  Company Number: US-MDT-ADR-2016-00854

PATIENT
  Age: 63 Year
  Sex: Male

DRUGS (10)
  1. DILAUDID [Suspect]
     Active Substance: HYDROMORPHONE HYDROCHLORIDE
     Dosage: 4.900 MG/DAY
     Route: 037
     Dates: start: 20160422
  2. PRIALT [Suspect]
     Active Substance: ZICONOTIDE ACETATE
     Dosage: 4.412 MCG/DAY
     Route: 037
     Dates: start: 20160503
  3. DILAUDID [Suspect]
     Active Substance: HYDROMORPHONE HYDROCHLORIDE
     Dosage: 4.202 MG/DAY
     Route: 037
     Dates: start: 20160503
  4. COMPOUNDED BACLOFEN [Suspect]
     Active Substance: BACLOFEN
     Dosage: 84.04 MCG/DAY
     Route: 037
     Dates: start: 20160503
  5. PRIALT [Suspect]
     Active Substance: ZICONOTIDE ACETATE
     Dosage: 6.124 MCG/DAY
     Route: 037
     Dates: start: 20160422
  6. COMPOUNDED BACLOFEN [Suspect]
     Active Substance: BACLOFEN
     Dosage: 97.99 MCG/DAY
     Route: 037
     Dates: start: 20160422
  7. PRIALT [Suspect]
     Active Substance: ZICONOTIDE ACETATE
     Dosage: 5.144 MCG/DAY
     Route: 037
  8. CLONIDINE. [Suspect]
     Active Substance: CLONIDINE
     Dosage: 168.7 MCG/DAY
     Route: 037
     Dates: start: 20160503
  9. NORTRIPTYLINE [Suspect]
     Active Substance: NORTRIPTYLINE
  10. CLONIDINE. [Suspect]
     Active Substance: CLONIDINE
     Dosage: 195.98 MCG/DAY
     Route: 037
     Dates: start: 20160422

REACTIONS (5)
  - Haematocrit decreased [Unknown]
  - Peritoneal haemorrhage [Unknown]
  - Pain [Recovered/Resolved]
  - Hypotension [Unknown]
  - Haemoglobin decreased [Unknown]

NARRATIVE: CASE EVENT DATE: 20160503
